FAERS Safety Report 8668624 (Version 2)
Quarter: 2015Q2

REPORT INFORMATION
  Report Type: Report from Study
  Country: US (occurrence: US)
  Receive Date: 20120717
  Receipt Date: 20150410
  Transmission Date: 20150821
  Serious: Yes (Death)
  Sender: FDA-Public Use
  Company Number: US-ROCHE-1086905

PATIENT
  Sex: Female

DRUGS (4)
  1. LUCENTIS [Suspect]
     Active Substance: RANIBIZUMAB
     Indication: AGE-RELATED MACULAR DEGENERATION
     Dosage: 0.5 MG/0.1 ML
     Route: 050
  2. LIDOCAIN [Concomitant]
  3. AVASTIN [Suspect]
     Active Substance: BEVACIZUMAB
     Indication: PRODUCT USED FOR UNKNOWN INDICATION
     Route: 065
  4. BETADINE [Concomitant]
     Active Substance: POVIDONE-IODINE

REACTIONS (3)
  - Influenza [Unknown]
  - Intravenous leiomyomatosis [Unknown]
  - Death [Fatal]
